FAERS Safety Report 9901918 (Version 1)
Quarter: 2014Q1

REPORT INFORMATION
  Report Type: Spontaneous
  Country: RU (occurrence: RU)
  Receive Date: 20140217
  Receipt Date: 20140217
  Transmission Date: 20141002
  Serious: Yes (Other)
  Sender: FDA-Public Use
  Company Number: RU-VIIV HEALTHCARE LIMITED-B0969631A

PATIENT
  Age: 43 Year
  Sex: Male

DRUGS (2)
  1. COMBIVIR [Suspect]
     Indication: HIV INFECTION
     Route: 065
     Dates: start: 2013
  2. REYATAZ [Suspect]
     Indication: HIV INFECTION
     Route: 065
     Dates: start: 2013

REACTIONS (2)
  - Tuberculosis [Recovering/Resolving]
  - Lymphadenopathy [Recovering/Resolving]
